FAERS Safety Report 8163144-7 (Version None)
Quarter: 2012Q1

REPORT INFORMATION
  Report Type: 
  Country: None (occurrence: None)
  Receive Date: 20120224
  Receipt Date: 20110615
  Transmission Date: 20120608
  Serious: No
  Sender: FDA-Public Use
  Company Number: US-PFIZER INC-K201100744

PATIENT
  Age: 22 Year
  Sex: Female
  Weight: 72.562 kg

DRUGS (4)
  1. FLECTOR [Suspect]
     Dosage: 1 PATCH, Q12 HRS
     Route: 061
     Dates: start: 20110601, end: 20110601
  2. ADVAIR DISKUS 100/50 [Concomitant]
     Indication: ASTHMA
     Dosage: UNK
  3. SINGULAIR [Concomitant]
     Indication: ASTHMA
     Dosage: UNK
  4. ALBUTEROL [Concomitant]
     Indication: ASTHMA
     Dosage: UNK

REACTIONS (3)
  - ASTHMA [None]
  - CHEST DISCOMFORT [None]
  - APPLICATION SITE ERYTHEMA [None]
